FAERS Safety Report 5608789-0 (Version None)
Quarter: 2008Q1

REPORT INFORMATION
  Report Type: 
  Country: None (occurrence: None)
  Receive Date: 20080131
  Receipt Date: 20080128
  Transmission Date: 20080703
  Serious: Yes (Death, Other)
  Sender: FDA-Public Use
  Company Number: GB-BRISTOL-MYERS SQUIBB COMPANY-13992037

PATIENT
  Age: 66 Year
  Sex: Female

DRUGS (2)
  1. MODECATE [Suspect]
     Indication: SCHIZOPHRENIA
     Dosage: STARTED 20 YEARS AGO.
     Route: 048
     Dates: end: 20071130
  2. NEULACTIL [Suspect]
     Indication: SCHIZOPHRENIA
     Dosage: THERAPY STARTED 25 YEARS AGO.
     Route: 048
     Dates: end: 20071201

REACTIONS (2)
  - CEREBRAL INFARCTION [None]
  - TACHYARRHYTHMIA [None]
